FAERS Safety Report 5373533-1 (Version None)
Quarter: 2007Q2

REPORT INFORMATION
  Report Type: 
  Country: None (occurrence: None)
  Receive Date: 20070628
  Receipt Date: 20070618
  Transmission Date: 20071010
  Serious: Yes (Life-Threatening, Hospitalization, Disabling, Other)
  Sender: FDA-Public Use
  Company Number: B0470353A

PATIENT
  Age: 71 Year
  Sex: Male
  Weight: 64.5 kg

DRUGS (17)
  1. AVANDIA [Suspect]
     Indication: DIABETES MELLITUS NON-INSULIN-DEPENDENT
     Route: 048
     Dates: start: 20040906, end: 20070222
  2. METFORMIN HCL [Concomitant]
     Dosage: 850MG THREE TIMES PER DAY
  3. SIMVASTATIN [Concomitant]
  4. PERINDOPRIL [Concomitant]
     Dosage: 8MG PER DAY
     Dates: start: 20061219
  5. INSULIN [Concomitant]
  6. INDAPAMIDE [Concomitant]
     Dosage: 2.5MG PER DAY
     Dates: start: 20040429
  7. ACARBOSE [Concomitant]
     Dosage: 50MG TWICE PER DAY
     Dates: start: 20040418
  8. BENDROFLUAZIDE [Concomitant]
     Dosage: 2.5MG PER DAY
     Dates: start: 20040618
  9. BEGRIVAC [Concomitant]
     Dosage: 1VIAL PER DAY
     Dates: start: 20041220, end: 20041220
  10. MAXITROL EYE DROPS [Concomitant]
     Dosage: 5ML PER DAY
     Dates: start: 20050727
  11. AMLODIPINE [Concomitant]
     Dosage: 5MG PER DAY
     Dates: start: 20051118
  12. DOXAZOSIN MESYLATE [Concomitant]
     Dosage: 4MG PER DAY
     Dates: start: 20070108
  13. GLICLAZIDE [Concomitant]
     Dosage: 80MG TWICE PER DAY
     Dates: start: 20070307
  14. METOCLOPRAMIDE [Concomitant]
     Dosage: 10MG THREE TIMES PER DAY
     Dates: start: 20070329
  15. FUROSEMIDE [Concomitant]
     Dosage: 40MG PER DAY
     Dates: start: 20070515
  16. SPIRONOLACTONE [Concomitant]
     Dosage: 50MG PER DAY
     Dates: start: 20070518
  17. ASPIRIN [Concomitant]
     Dosage: 75MG PER DAY
     Dates: start: 20070608

REACTIONS (15)
  - BLOOD ALBUMIN INCREASED [None]
  - BLOOD GLUCOSE INCREASED [None]
  - CARDIAC FAILURE [None]
  - CARDIOMEGALY [None]
  - DYSPNOEA [None]
  - DYSPNOEA EXERTIONAL [None]
  - ELECTROCARDIOGRAM POOR R-WAVE PROGRESSION [None]
  - ELECTROCARDIOGRAM T WAVE AMPLITUDE DECREASED [None]
  - GALLOP RHYTHM PRESENT [None]
  - JUGULAR VEIN DISTENSION [None]
  - OEDEMA PERIPHERAL [None]
  - ORTHOPNOEA [None]
  - PLEURAL EFFUSION [None]
  - RENAL IMPAIRMENT [None]
  - WEIGHT INCREASED [None]
